FAERS Safety Report 11682604 (Version 1)
Quarter: 2015Q4

REPORT INFORMATION
  Report Type: Spontaneous
  Country: US (occurrence: None)
  Receive Date: 20151028
  Receipt Date: 20151028
  Transmission Date: 20160304
  Serious: Yes (Hospitalization)
  Sender: FDA-Public Use
  Company Number: None

PATIENT
  Age: 76 Year
  Sex: Male
  Weight: 81.5 kg

DRUGS (1)
  1. OPDIVO [Suspect]
     Active Substance: NIVOLUMAB
     Indication: METASTATIC MALIGNANT MELANOMA
     Route: 042
     Dates: start: 20151002, end: 20151002

REACTIONS (5)
  - Mood swings [None]
  - Diabetes mellitus inadequate control [None]
  - Acute interstitial pneumonitis [None]
  - Acute respiratory failure [None]
  - Mental status changes [None]

NARRATIVE: CASE EVENT DATE: 20151015
